FAERS Safety Report 7002610-4 (Version None)
Quarter: 2010Q3

REPORT INFORMATION
  Report Type: 
  Country: None (occurrence: None)
  Receive Date: 20100917
  Receipt Date: 20100917
  Transmission Date: 20110219
  Serious: Yes (Disabling, Other)
  Sender: FDA-Public Use
  Company Number: None

PATIENT
  Age: 60 Year
  Sex: Female
  Weight: 54.4316 kg

DRUGS (2)
  1. FLUOROMETHOLONE [Suspect]
     Indication: DRY EYE
     Dosage: 1 DROP EACH EYE 3X/D OPTHALMIC
     Route: 047
     Dates: start: 20100825, end: 20100831
  2. FLUOROMETHOLONE [Suspect]
     Indication: KERATITIS
     Dosage: 1 DROP EACH EYE 3X/D OPTHALMIC
     Route: 047
     Dates: start: 20100825, end: 20100831

REACTIONS (6)
  - BLINDNESS [None]
  - CORNEAL DISORDER [None]
  - EYE IRRITATION [None]
  - EYE PAIN [None]
  - PRODUCT QUALITY ISSUE [None]
  - VISION BLURRED [None]
